FAERS Safety Report 14965522 (Version 1)
Quarter: 2018Q2

REPORT INFORMATION
  Report Type: Spontaneous
  Country: US (occurrence: US)
  Receive Date: 20180602
  Receipt Date: 20180602
  Transmission Date: 20180711
  Serious: No
  Sender: FDA-Public Use
  Company Number: US-ASTRAZENECA-2018SE69859

PATIENT

DRUGS (2)
  1. FARXIGA [Suspect]
     Active Substance: DAPAGLIFLOZIN PROPANEDIOL
     Route: 048
  2. GABAPENTIN. [Concomitant]
     Active Substance: GABAPENTIN

REACTIONS (2)
  - Thirst [Unknown]
  - Neuropathy peripheral [Unknown]
